FAERS Safety Report 10585162 (Version 1)
Quarter: 2014Q4

REPORT INFORMATION
  Report Type: Spontaneous
  Country: BR (occurrence: BR)
  Receive Date: 20141114
  Receipt Date: 20141114
  Transmission Date: 20150529
  Serious: Yes (Other)
  Sender: FDA-Public Use
  Company Number: BR-ABBVIE-14P-020-1307665-00

PATIENT
  Sex: Female
  Weight: 79 kg

DRUGS (5)
  1. SINVALIP [Concomitant]
     Indication: BLOOD CHOLESTEROL
     Dosage: DAILY DOSE: 1 TABLET AT NIGHT
     Route: 048
  2. DEPAKOTE [Suspect]
     Active Substance: DIVALPROEX SODIUM
     Indication: SYNCOPE
     Dosage: DAILY DOSE: 500MG; AT NIGHT
     Route: 048
     Dates: start: 2014
  3. LOSARTAN [Concomitant]
     Active Substance: LOSARTAN
     Indication: BLOOD PRESSURE
     Dosage: DAILY DOSE: 1 TABLET AT NIGHT
     Route: 048
  4. PURAN [Concomitant]
     Active Substance: LEVOTHYROXINE SODIUM
     Indication: THYROID DISORDER
     Dosage: DAILY DOSE: 1 TABLET; ONCE A DAY
     Route: 048
  5. ALENIA [Concomitant]
     Active Substance: BUDESONIDE\FORMOTEROL FUMARATE
     Indication: BRONCHIAL DISORDER
     Dosage: FREQUENCY TEXT: AT NIGHT
     Route: 055

REACTIONS (4)
  - Memory impairment [Not Recovered/Not Resolved]
  - Malaise [Recovering/Resolving]
  - Pruritus [Recovering/Resolving]
  - Hypersomnia [Not Recovered/Not Resolved]

NARRATIVE: CASE EVENT DATE: 2014
